FAERS Safety Report 21625611 (Version 1)
Quarter: 2022Q4

REPORT INFORMATION
  Report Type: Spontaneous
  Country: US (occurrence: None)
  Receive Date: 20221122
  Receipt Date: 20221122
  Transmission Date: 20230112
  Serious: No
  Sender: FDA-Public Use
  Company Number: US-ROCHE-3018982

PATIENT
  Age: 60 Year
  Sex: Female

DRUGS (6)
  1. TRASTUZUMAB [Suspect]
     Active Substance: TRASTUZUMAB
     Indication: Product used for unknown indication
     Route: 065
  2. PERTUZUMAB [Suspect]
     Active Substance: PERTUZUMAB
     Indication: Product used for unknown indication
     Route: 065
  3. CAPECITABINE [Suspect]
     Active Substance: CAPECITABINE
     Indication: Product used for unknown indication
     Route: 048
  4. TUCATINIB [Suspect]
     Active Substance: TUCATINIB
     Indication: Product used for unknown indication
     Route: 065
  5. CARVEDILOL [Concomitant]
     Active Substance: CARVEDILOL
  6. LISINOPRIL [Concomitant]
     Active Substance: LISINOPRIL

REACTIONS (1)
  - Ejection fraction decreased [Unknown]
